FAERS Safety Report 10112269 (Version 1)
Quarter: 2014Q2

REPORT INFORMATION
  Report Type: Report from Study
  Country: US (occurrence: US)
  Receive Date: 20140425
  Receipt Date: 20140425
  Transmission Date: 20141212
  Serious: Yes (Hospitalization, Other)
  Sender: FDA-Public Use
  Company Number: PHEH2014US008119

PATIENT
  Age: 26 Year
  Sex: Female
  Weight: 51.25 kg

DRUGS (7)
  1. TOBI [Suspect]
     Indication: CYSTIC FIBROSIS
     Dosage: 300/5 MG/ML, BID
     Route: 055
     Dates: end: 2013
  2. PULMOZYME [Concomitant]
  3. XOPENEX [Concomitant]
  4. ZENPEP [Concomitant]
  5. VITAMINS [Concomitant]
  6. PRILOSEC [Concomitant]
  7. INSULIN [Concomitant]

REACTIONS (3)
  - Pneumonia [Unknown]
  - Cystic fibrosis [Unknown]
  - Condition aggravated [Unknown]
